FAERS Safety Report 21246516 (Version 3)
Quarter: 2022Q3

REPORT INFORMATION
  Report Type: Spontaneous
  Country: US (occurrence: US)
  Receive Date: 20220824
  Receipt Date: 20220906
  Transmission Date: 20221026
  Serious: No
  Sender: FDA-Public Use
  Company Number: US-UNITED THERAPEUTICS-UNT-2022-016657

PATIENT
  Sex: Female
  Weight: 94.331 kg

DRUGS (8)
  1. REMODULIN [Suspect]
     Active Substance: TREPROSTINIL
     Indication: Pulmonary arterial hypertension
     Dosage: UNK, CONTINUING
     Route: 058
     Dates: start: 20220218, end: 20220813
  2. REMODULIN [Suspect]
     Active Substance: TREPROSTINIL
     Dosage: 0.021 ?G/KG, CONTINUING
     Route: 058
     Dates: start: 2022
  3. REMODULIN [Suspect]
     Active Substance: TREPROSTINIL
     Dosage: 0.025 ?G/KG, CONTINUING
     Route: 058
     Dates: start: 2022
  4. UPTRAVI [Suspect]
     Active Substance: SELEXIPAG
     Indication: Pulmonary arterial hypertension
     Dosage: UNK
     Route: 065
     Dates: start: 2022
  5. UPTRAVI [Suspect]
     Active Substance: SELEXIPAG
     Dosage: UNK UNK, BID (400 MCG IN THE AM AND 600 MCG IN THE EVENING)
     Route: 065
     Dates: start: 2022
  6. ADEMPAS [Suspect]
     Active Substance: RIOCIGUAT
     Indication: Product used for unknown indication
     Dosage: UNK
     Route: 065
  7. XARELTO [Concomitant]
     Active Substance: RIVAROXABAN
     Indication: Product used for unknown indication
     Dosage: UNK
     Route: 065
  8. AMBRISENTAN [Concomitant]
     Active Substance: AMBRISENTAN
     Indication: Product used for unknown indication
     Route: 065

REACTIONS (27)
  - Asthenia [Unknown]
  - Burning sensation [Unknown]
  - Fatigue [Unknown]
  - Anxiety [Not Recovered/Not Resolved]
  - Insomnia [Unknown]
  - Oedema peripheral [Unknown]
  - Localised oedema [Unknown]
  - Dyspnoea [Unknown]
  - Thyroid disorder [Unknown]
  - Abdominal hernia [Unknown]
  - Hypersomnia [Unknown]
  - Headache [Not Recovered/Not Resolved]
  - Oedema [Not Recovered/Not Resolved]
  - Oxygen saturation decreased [Unknown]
  - Condition aggravated [Unknown]
  - Diarrhoea [Unknown]
  - Constipation [Unknown]
  - Joint swelling [Unknown]
  - Pain [Unknown]
  - Heart rate increased [Unknown]
  - Malaise [Unknown]
  - Muscular weakness [Unknown]
  - Cough [Unknown]
  - Weight increased [Unknown]
  - Paraesthesia [Unknown]
  - Lung disorder [Unknown]
  - Treatment noncompliance [Unknown]

NARRATIVE: CASE EVENT DATE: 20220101
